FAERS Safety Report 8260832-9 (Version None)
Quarter: 2012Q2

REPORT INFORMATION
  Report Type: 
  Country: None (occurrence: None)
  Receive Date: 20120402
  Receipt Date: 20120325
  Transmission Date: 20120825
  Serious: Yes (Other)
  Sender: FDA-Public Use
  Company Number: 2011SP025397

PATIENT
  Age: 42 Year
  Sex: Female

DRUGS (7)
  1. PREVACID [Concomitant]
  2. GANIRELIX ACETATE INJECTION [Suspect]
     Indication: ASSISTED FERTILISATION
     Dosage: 250 MCG;QD;SC
     Route: 058
     Dates: start: 20110531, end: 20110531
  3. SEROQUEL [Concomitant]
  4. SINGULAIR [Concomitant]
  5. LABETALOL HCL [Concomitant]
  6. ZYRTEC [Concomitant]
  7. ALBUTEROL [Concomitant]

REACTIONS (9)
  - WHEEZING [None]
  - SYRINGE ISSUE [None]
  - DYSPNOEA [None]
  - LATEX ALLERGY [None]
  - CONDITION AGGRAVATED [None]
  - RESPIRATORY DISTRESS [None]
  - BLOOD PRESSURE INCREASED [None]
  - EYE PRURITUS [None]
  - FLUSHING [None]
